FAERS Safety Report 25631198 (Version 1)
Quarter: 2025Q3

REPORT INFORMATION
  Report Type: Spontaneous
  Country: EU (occurrence: EU)
  Receive Date: 20250801
  Receipt Date: 20250801
  Transmission Date: 20251020
  Serious: Yes (Death)
  Sender: ACCORD
  Company Number: None

PATIENT
  Age: 67 Year
  Sex: Female

DRUGS (16)
  1. CARBOPLATIN [Interacting]
     Active Substance: CARBOPLATIN
     Indication: Product used for unknown indication
     Dates: start: 20250201, end: 20250201
  2. PIPERACILLIN AND TAZOBACTAM [Interacting]
     Active Substance: PIPERACILLIN SODIUM\TAZOBACTAM SODIUM
     Indication: Product used for unknown indication
     Dates: start: 20250305, end: 20250314
  3. PEMBROLIZUMAB [Interacting]
     Active Substance: PEMBROLIZUMAB
     Indication: Ovarian neoplasm
     Dates: start: 20250417, end: 20250417
  4. EUTHYROX [Concomitant]
     Active Substance: LEVOTHYROXINE SODIUM
     Dosage: STRENGTH: 100MCG, 1-0-0-0
  5. PANTOPRAZOLE SODIUM [Concomitant]
     Active Substance: PANTOPRAZOLE SODIUM
     Dosage: STRENGTH: 40 MG, 1-0-0-0
  6. SERTRALINE [Concomitant]
     Active Substance: SERTRALINE HYDROCHLORIDE
     Dosage: STRENGTH: 50 MG, 1-0-0-0
  7. XARELTO [Concomitant]
     Active Substance: RIVAROXABAN
     Dosage: STRENGTH: 20 MG, 1-0-0-0
  8. ROSUVASTATIN [Concomitant]
     Active Substance: ROSUVASTATIN
     Dosage: STRENGTH: 20MG, 0-0-1-0
  9. LYRICA [Concomitant]
     Active Substance: PREGABALIN
     Dosage: STRENGTH: 75MG, 1-0-2-0
  10. NOVALGIN [Concomitant]
     Dosage: STRENGTH: 50 MG, 40-40-40-0 GTT
  11. EMPAGLIFLOZIN\METFORMIN HYDROCHLORIDE [Concomitant]
     Active Substance: EMPAGLIFLOZIN\METFORMIN HYDROCHLORIDE
     Dosage: STRENGTH: 12.5/1000MG, 1-0-0-1
  12. INSULIN DEGLUDEC [Concomitant]
     Active Substance: INSULIN DEGLUDEC
     Dosage: STRENGTH: 100U/ML FPEN 3ML, 20IU-0-0-0
  13. NOVORAPID [Concomitant]
     Active Substance: INSULIN ASPART
  14. CARBOPLATIN [Interacting]
     Active Substance: CARBOPLATIN
     Indication: Product used for unknown indication
     Dates: start: 2025, end: 2025
  15. CARBOPLATIN [Interacting]
     Active Substance: CARBOPLATIN
     Indication: Product used for unknown indication
     Dates: start: 20250417, end: 20250417
  16. PIPERACILLIN AND TAZOBACTAM [Interacting]
     Active Substance: PIPERACILLIN SODIUM\TAZOBACTAM SODIUM
     Indication: Product used for unknown indication
     Dates: start: 20250504, end: 20250519

REACTIONS (4)
  - Immune-mediated hepatitis [Fatal]
  - Drug-induced liver injury [Fatal]
  - Immune-mediated thyroiditis [Fatal]
  - Cholestatic liver injury [Fatal]
